FAERS Safety Report 18318981 (Version 2)
Quarter: 2020Q4

REPORT INFORMATION
  Report Type: Spontaneous
  Country: US (occurrence: US)
  Receive Date: 20200928
  Receipt Date: 20201006
  Transmission Date: 20210113
  Serious: No
  Sender: FDA-Public Use
  Company Number: US-MYLANLABS-2020M1075065

PATIENT
  Sex: Female

DRUGS (1)
  1. PROCTOFOAM HC [Suspect]
     Active Substance: HYDROCORTISONE ACETATE\PRAMOXINE HYDROCHLORIDE
     Indication: COLITIS ULCERATIVE
     Dosage: 1 PERCENT, BID (ONCE IN THE MORNING AND ONCE AT NIGHT)
     Route: 054

REACTIONS (3)
  - Product quality issue [Unknown]
  - Device dispensing error [Unknown]
  - Device issue [Unknown]
